FAERS Safety Report 15736804 (Version 1)
Quarter: 2018Q4

REPORT INFORMATION
  Report Type: Report from Study
  Country: US (occurrence: US)
  Receive Date: 20181218
  Receipt Date: 20181218
  Transmission Date: 20190205
  Serious: Yes (Life-Threatening, Hospitalization)
  Sender: FDA-Public Use
  Company Number: US-MYLANLABS-2018M1092578

PATIENT
  Age: 58 Year
  Sex: Female

DRUGS (1)
  1. DILTIAZEM. [Suspect]
     Active Substance: DILTIAZEM
     Indication: PRODUCT USED FOR UNKNOWN INDICATION
     Dosage: PRESCRIBED DOSE WAS 180MG
     Route: 048

REACTIONS (5)
  - Pneumonia aspiration [Unknown]
  - Hypotension [Unknown]
  - Confusional state [Unknown]
  - Extra dose administered [Unknown]
  - Bradycardia [Unknown]
